FAERS Safety Report 25486816 (Version 1)
Quarter: 2025Q2

REPORT INFORMATION
  Report Type: Spontaneous
  Country: BE (occurrence: BE)
  Receive Date: 20250627
  Receipt Date: 20250627
  Transmission Date: 20250716
  Serious: Yes (Death, Other)
  Sender: SANDOZ
  Company Number: BE-002147023-PHHY2018BE170117

PATIENT
  Age: 25 Year
  Sex: Male

DRUGS (7)
  1. ALKERAN [Suspect]
     Active Substance: MELPHALAN
     Indication: Stem cell transplant
     Dosage: 100 MG/M2, QD (DAY -8)
     Route: 065
  2. CYCLOSPORINE [Suspect]
     Active Substance: CYCLOSPORINE
     Indication: Prophylaxis against graft versus host disease
     Route: 065
  3. CYCLOPHOSPHAMIDE [Suspect]
     Active Substance: CYCLOPHOSPHAMIDE
     Indication: Prophylaxis against graft versus host disease
     Dosage: 50 MG/KG, QD (DAY +3 AND +4)
     Route: 065
  4. FLUDARABINE [Suspect]
     Active Substance: FLUDARABINE PHOSPHATE
     Indication: Stem cell transplant
     Dosage: 40 MG/M2, QD (FROM DAY -6 TO DAY -3)
     Route: 065
  5. MYCOPHENOLATE MOFETIL [Suspect]
     Active Substance: MYCOPHENOLATE MOFETIL
     Indication: Prophylaxis against graft versus host disease
     Route: 065
  6. THIOTEPA [Suspect]
     Active Substance: THIOTEPA
     Indication: Stem cell transplant
     Dosage: 5 MG/KG, QD (DAY-7)
     Route: 065
  7. GANCICLOVIR [Concomitant]
     Active Substance: GANCICLOVIR
     Indication: Antiviral prophylaxis
     Route: 065

REACTIONS (5)
  - Cerebral haemorrhage [Fatal]
  - Headache [Fatal]
  - Acute graft versus host disease [Unknown]
  - Diarrhoea [Unknown]
  - Abdominal pain [Unknown]
